FAERS Safety Report 9019541 (Version 3)
Quarter: 2013Q4

REPORT INFORMATION
  Report Type: Report from Study
  Country: DE (occurrence: DE)
  Receive Date: 20130118
  Receipt Date: 20131119
  Transmission Date: 20140711
  Serious: Yes (Hospitalization)
  Sender: FDA-Public Use
  Company Number: DE-JNJFOC-20130110192

PATIENT
  Age: 81 Year
  Sex: Male
  Weight: 96 kg

DRUGS (11)
  1. RIVAROXABAN [Suspect]
     Indication: ATRIAL FIBRILLATION
     Route: 048
     Dates: start: 20121228
  2. RIVAROXABAN [Suspect]
     Indication: ATRIAL FIBRILLATION
     Route: 048
     Dates: start: 20120718, end: 20121227
  3. RIVAROXABAN [Suspect]
     Indication: CEREBROVASCULAR ACCIDENT PROPHYLAXIS
     Route: 048
     Dates: start: 20120718, end: 20121227
  4. RIVAROXABAN [Suspect]
     Indication: CEREBROVASCULAR ACCIDENT PROPHYLAXIS
     Route: 048
     Dates: start: 20121228
  5. BISOPROLOL [Concomitant]
     Indication: ATRIAL FIBRILLATION
     Route: 065
     Dates: start: 200909
  6. DUTASTERIDE [Concomitant]
     Route: 065
     Dates: start: 20121228
  7. VALSARTAN [Concomitant]
     Indication: HYPERTENSION
     Route: 065
     Dates: start: 201101
  8. LYRICA [Concomitant]
     Route: 065
     Dates: start: 20121228
  9. TAMSULOSIN [Concomitant]
     Route: 065
     Dates: start: 20121228
  10. ACETYLSALICYLIC ACID [Concomitant]
     Route: 065
     Dates: start: 201205, end: 20120717
  11. HCT [Concomitant]
     Indication: HYPERTENSION
     Route: 065
     Dates: start: 201101

REACTIONS (3)
  - Peripheral sensory neuropathy [Recovered/Resolved]
  - Neuropathy peripheral [Recovered/Resolved]
  - Renal failure [Recovered/Resolved]
